FAERS Safety Report 17271168 (Version 1)
Quarter: 2020Q1

REPORT INFORMATION
  Report Type: Spontaneous
  Country: US (occurrence: US)
  Receive Date: 20200115
  Receipt Date: 20200115
  Transmission Date: 20200409
  Serious: No
  Sender: FDA-Public Use
  Company Number: PR-ASTRAZENECA-2019SF85168

PATIENT
  Sex: Male

DRUGS (1)
  1. BYDUREON BCISE [Suspect]
     Active Substance: EXENATIDE
     Indication: DIABETES MELLITUS
     Route: 058

REACTIONS (5)
  - Abdominal pain upper [Unknown]
  - Myalgia [Unknown]
  - Nausea [Unknown]
  - Injection site pain [Unknown]
  - Diarrhoea [Unknown]
